FAERS Safety Report 7275530-8 (Version None)
Quarter: 2011Q1

REPORT INFORMATION
  Report Type: 
  Country: None (occurrence: None)
  Receive Date: 20110204
  Receipt Date: 20110128
  Transmission Date: 20110831
  Serious: Yes (Other)
  Sender: FDA-Public Use
  Company Number: GB-BRISTOL-MYERS SQUIBB COMPANY-15522170

PATIENT
  Age: 51 Year

DRUGS (7)
  1. COLCHICINE [Concomitant]
  2. METFORMIN HCL [Suspect]
  3. CETRIZINE [Concomitant]
  4. VALSARTAN [Concomitant]
  5. MIRTAZAPINE [Suspect]
     Indication: DEPRESSION
     Dosage: APPROX 10 YEARS
  6. ALLOPURINOL [Concomitant]
  7. DOXAZOSIN [Suspect]

REACTIONS (1)
  - PANCREATITIS ACUTE [None]
